FAERS Safety Report 19387424 (Version 1)
Quarter: 2021Q2

REPORT INFORMATION
  Report Type: Spontaneous
  Country: US (occurrence: US)
  Receive Date: 20210608
  Receipt Date: 20210608
  Transmission Date: 20210717
  Serious: Yes (Hospitalization, Other)
  Sender: FDA-Public Use
  Company Number: US-ABBVIE-21K-163-3894801-00

PATIENT
  Age: 64 Year
  Sex: Male
  Weight: 69.01 kg

DRUGS (5)
  1. COVID?19 VACCINE [Concomitant]
     Dosage: MODERNA
     Route: 030
  2. HUMIRA [Suspect]
     Active Substance: ADALIMUMAB
     Route: 058
     Dates: start: 20210512
  3. LISINOPRIL. [Concomitant]
     Active Substance: LISINOPRIL
     Indication: HYPERTENSION
  4. HUMIRA [Suspect]
     Active Substance: ADALIMUMAB
     Indication: PSORIASIS
     Route: 058
     Dates: start: 2019
  5. COVID?19 VACCINE [Concomitant]
     Indication: COVID-19 IMMUNISATION
     Dosage: MODERNA
     Route: 030
     Dates: start: 20210115, end: 20210115

REACTIONS (6)
  - Wrong technique in product usage process [Recovered/Resolved]
  - Memory impairment [Recovering/Resolving]
  - Speech disorder [Not Recovered/Not Resolved]
  - Device issue [Unknown]
  - Cerebrovascular accident [Unknown]
  - Rehabilitation therapy [Unknown]

NARRATIVE: CASE EVENT DATE: 20200201
